FAERS Safety Report 7198201-5 (Version None)
Quarter: 2010Q4

REPORT INFORMATION
  Report Type: 
  Country: None (occurrence: None)
  Receive Date: 20101223
  Receipt Date: 20101223
  Transmission Date: 20110411
  Serious: Yes (Hospitalization)
  Sender: FDA-Public Use
  Company Number: None

PATIENT
  Sex: Female
  Weight: 74.5 kg

DRUGS (2)
  1. LABETALOL HCL [Suspect]
     Indication: PRE-ECLAMPSIA
     Dosage: 200 MG Q 12 HR ORAL
     Route: 048
     Dates: start: 20101010, end: 20101124
  2. LABETALOL HCL [Suspect]
     Indication: HYPERTENSION
     Dosage: 100 MG Q 12 HR ORAL
     Route: 048
     Dates: start: 20101125, end: 20101208

REACTIONS (4)
  - HEADACHE [None]
  - NASAL CONGESTION [None]
  - PALPITATIONS [None]
  - YAWNING [None]
